FAERS Safety Report 9438835 (Version 1)
Quarter: 2013Q3

REPORT INFORMATION
  Report Type: Spontaneous
  Country: SE (occurrence: SE)
  Receive Date: 20130802
  Receipt Date: 20130802
  Transmission Date: 20140515
  Serious: Yes (Hospitalization, Other)
  Sender: FDA-Public Use
  Company Number: SE-ELI_LILLY_AND_COMPANY-SE201305001941

PATIENT
  Sex: Male

DRUGS (2)
  1. HUMALOG LISPRO [Suspect]
     Dosage: UNK, SINGLE
     Dates: start: 20130416, end: 20130416
  2. HUMULIN NPH [Suspect]

REACTIONS (4)
  - Subileus [Unknown]
  - Hypoglycaemia [Recovered/Resolved]
  - Product name confusion [Recovered/Resolved]
  - Wrong drug administered [Recovered/Resolved]
